FAERS Safety Report 5537081-8 (Version None)
Quarter: 2007Q4

REPORT INFORMATION
  Report Type: 
  Country: None (occurrence: None)
  Receive Date: 20071207
  Receipt Date: 20071205
  Transmission Date: 20080405
  Serious: Yes (Hospitalization)
  Sender: FDA-Public Use
  Company Number: US-BRISTOL-MYERS SQUIBB COMPANY-14002380

PATIENT
  Age: 78 Year
  Sex: Female

DRUGS (8)
  1. METFORMIN HCL [Suspect]
  2. GLYBURIDE [Suspect]
  3. FUROSEMIDE [Suspect]
  4. ROFECOXIB [Suspect]
  5. LEVOTHYROXINE SODIUM [Suspect]
  6. PREDNISONE [Suspect]
  7. AZATHIOPRINE [Suspect]
  8. PROPRANOLOL HYDROCHLORIDE [Suspect]

REACTIONS (3)
  - LACTIC ACIDOSIS [None]
  - METABOLIC ACIDOSIS [None]
  - RENAL INJURY [None]
